FAERS Safety Report 8909426 (Version 1)
Quarter: 2012Q4

REPORT INFORMATION
  Report Type: Spontaneous
  Country: GB (occurrence: None)
  Receive Date: 20121107
  Receipt Date: 20121107
  Transmission Date: 20130627
  Serious: Yes (Death)
  Sender: FDA-Public Use
  Company Number: AUR-APL-2012-04652

PATIENT
  Age: 69 Year
  Sex: Female
  Weight: 80 kg

DRUGS (5)
  1. CITALOPRAM (CITALOPRAM) [Suspect]
     Indication: DRUG USE FOR UNKNOWN INDICATION
  2. ATIVAN (LORAZEPAM) [Suspect]
     Indication: DRUG USE FOR UNKNOWN INDICATION
  3. DIAZEPAM (DIAZEPAM) [Suspect]
     Indication: DRUG USE FOR UNKNOWN INDICATION
  4. NITRAZEPAM (NITRAZEPAM) [Suspect]
     Indication: DRUG USE FOR UNKNOWN INDICATION
  5. REMINYL XL (GALANTAMINE HYDROBROMIDE) [Suspect]
     Indication: DRUG USE FOR UNKNOWN INDICATION

REACTIONS (4)
  - Accidental overdose [None]
  - Catatonia [None]
  - Drug interaction [None]
  - Drug withdrawal syndrome [None]
